FAERS Safety Report 7996946-8 (Version None)
Quarter: 2011Q4

REPORT INFORMATION
  Report Type: 
  Country: None (occurrence: None)
  Receive Date: 20111216
  Receipt Date: 20111213
  Transmission Date: 20120403
  Serious: Yes (Other)
  Sender: FDA-Public Use
  Company Number: GER/UKI/11/0022319

PATIENT
  Age: 83 Year
  Sex: Female
  Weight: 64.9 kg

DRUGS (3)
  1. BENDROFLUMETHIAZIDE (BENDROFLUMETHIAZIDE) [Concomitant]
  2. AMLODIPINE [Suspect]
     Indication: PRODUCT USED FOR UNKNOWN INDICATION
     Dosage: 5 MG, ORAL
     Route: 048
  3. BECONASE (BECLOMEASONE DIPROPIONATE) [Concomitant]

REACTIONS (6)
  - SINUS DISORDER [None]
  - HEADACHE [None]
  - LOCAL SWELLING [None]
  - DIZZINESS [None]
  - SWELLING FACE [None]
  - PHOTOPHOBIA [None]
